FAERS Safety Report 18198734 (Version 1)
Quarter: 2020Q3

REPORT INFORMATION
  Report Type: Spontaneous
  Country: US (occurrence: US)
  Receive Date: 20200826
  Receipt Date: 20200826
  Transmission Date: 20201103
  Serious: Yes (Hospitalization)
  Sender: FDA-Public Use
  Company Number: US-BAYER-2020-177235

PATIENT
  Age: 61 Year
  Sex: Female

DRUGS (1)
  1. ACETYLSALICYLIC ACID [Suspect]
     Active Substance: ASPIRIN

REACTIONS (4)
  - Cerebellar haemorrhage [None]
  - Cerebral microhaemorrhage [None]
  - Contraindicated product administered [None]
  - Brain stem haemorrhage [None]
